FAERS Safety Report 16203249 (Version 10)
Quarter: 2020Q4

REPORT INFORMATION
  Report Type: Report from Study
  Country: AU (occurrence: AU)
  Receive Date: 20190416
  Receipt Date: 20201222
  Transmission Date: 20210113
  Serious: Yes (Hospitalization, Disabling, Other)
  Sender: FDA-Public Use
  Company Number: AU-EISAI MEDICAL RESEARCH-EC-2018-048437

PATIENT
  Age: 63 Year
  Sex: Male
  Weight: 66.6 kg

DRUGS (56)
  1. ESOMEPRAZOLE. [Concomitant]
     Active Substance: ESOMEPRAZOLE MAGNESIUM
  2. VITAMIN D [Concomitant]
     Active Substance: VITAMIN D NOS
     Indication: NEOPLASM MALIGNANT
     Route: 048
     Dates: start: 20190403
  3. LACTULOSE. [Concomitant]
     Active Substance: LACTULOSE
  4. BISACODYL. [Concomitant]
     Active Substance: BISACODYL
     Indication: CONSTIPATION
     Route: 054
     Dates: start: 20190909
  5. MICROLAX ENEMA [Concomitant]
     Indication: CONSTIPATION
     Route: 054
     Dates: start: 20190831
  6. GLYCEROL SUPPOSITORY [Concomitant]
  7. METHYLNALTREXONE [Concomitant]
     Active Substance: METHYLNALTREXONE
  8. COLECALCIFEROL [Concomitant]
     Active Substance: CHOLECALCIFEROL
  9. LACTULOSE. [Concomitant]
     Active Substance: LACTULOSE
  10. METHADONE [Concomitant]
     Active Substance: METHADONE HYDROCHLORIDE
  11. BUPIVACAINE. [Concomitant]
     Active Substance: BUPIVACAINE
  12. NULAX FRUIT LAXATIVE [Concomitant]
     Indication: CONSTIPATION
     Dosage: 1-3 TSP BD
     Route: 048
     Dates: start: 20190615
  13. PROPANOLOL [Concomitant]
     Active Substance: PROPRANOLOL HYDROCHLORIDE
     Indication: PROSTATISM
     Route: 048
     Dates: start: 20190902
  14. TAMSULOSIN [Concomitant]
     Active Substance: TAMSULOSIN
  15. CALCIUM CARBONATE. [Concomitant]
     Active Substance: CALCIUM CARBONATE
     Indication: NEOPLASM MALIGNANT
     Route: 048
     Dates: start: 20190305
  16. CEPHALEXIN. [Concomitant]
     Active Substance: CEPHALEXIN
  17. LENVATINIB [Suspect]
     Active Substance: LENVATINIB
     Route: 048
     Dates: start: 20200311, end: 20200311
  18. PROZOSIN [Concomitant]
  19. DILAUDID [Concomitant]
     Active Substance: HYDROMORPHONE HYDROCHLORIDE
  20. COLOXYL +SENNA [Concomitant]
  21. ONDANSETRON [Concomitant]
     Active Substance: ONDANSETRON
     Indication: NAUSEA
     Dosage: 4-8 MG
     Route: 048
     Dates: start: 20190925
  22. NEXIUM [Concomitant]
     Active Substance: ESOMEPRAZOLE MAGNESIUM
  23. PARACETAMOL [Concomitant]
     Active Substance: ACETAMINOPHEN
     Indication: ANALGESIC THERAPY
     Route: 048
     Dates: start: 20180504
  24. METOCLOPRAMIDE. [Concomitant]
     Active Substance: METOCLOPRAMIDE
     Indication: NAUSEA
     Dosage: 10-20 MG, PRN/TDS
     Route: 048
     Dates: start: 20181231
  25. GLYCEROL [Concomitant]
     Active Substance: GLYCERIN
  26. FLEET ENEMA [Concomitant]
     Active Substance: SODIUM PHOSPHATE, DIBASIC\SODIUM PHOSPHATE, MONOBASIC
  27. MIDAZOLAM. [Concomitant]
     Active Substance: MIDAZOLAM
  28. PETER MACCALLUM MOUTHWASH [Concomitant]
  29. BACTRIM [Concomitant]
     Active Substance: SULFAMETHOXAZOLE\TRIMETHOPRIM
  30. LENVATINIB [Suspect]
     Active Substance: LENVATINIB
     Route: 048
     Dates: end: 20200304
  31. LENVATINIB [Suspect]
     Active Substance: LENVATINIB
     Route: 048
     Dates: start: 20200313, end: 20200313
  32. HALOPERIDOL. [Concomitant]
     Active Substance: HALOPERIDOL
  33. DENOSUMAB [Concomitant]
     Active Substance: DENOSUMAB
  34. MACROGOL 3350 [Concomitant]
     Active Substance: POLYETHYLENE GLYCOL 3350
     Indication: CONSTIPATION
     Dosage: 1-4 UNITS
     Route: 048
     Dates: start: 20181226
  35. FENTANYL. [Concomitant]
     Active Substance: FENTANYL
  36. LENVATINIB [Suspect]
     Active Substance: LENVATINIB
     Indication: RENAL CELL CARCINOMA
     Route: 048
     Dates: start: 20180606
  37. RAMIPRIL. [Concomitant]
     Active Substance: RAMIPRIL
  38. CYCLIZINE [Concomitant]
     Active Substance: CYCLIZINE
  39. LORAZEPAM. [Concomitant]
     Active Substance: LORAZEPAM
     Indication: ANXIETY
     Route: 048
     Dates: start: 20190903
  40. MELATONIN [Concomitant]
     Active Substance: MELATONIN
  41. DOCUSATE SENNA [Concomitant]
     Indication: CONSTIPATION
     Dosage: 2-6 TABLETS DAILY/PRN
     Route: 048
     Dates: start: 20190523
  42. OXYNORM [Concomitant]
     Active Substance: OXYCODONE HYDROCHLORIDE
  43. SENNA [Concomitant]
     Active Substance: SENNA LEAF\SENNOSIDES\SENNOSIDES A AND B
  44. JURNISTA [Concomitant]
     Active Substance: HYDROMORPHONE HYDROCHLORIDE
  45. ENOXAPARIN [Concomitant]
     Active Substance: ENOXAPARIN
  46. PARAFFIN [Concomitant]
     Active Substance: PARAFFIN
  47. LENVATINIB [Suspect]
     Active Substance: LENVATINIB
     Route: 048
     Dates: start: 20200315, end: 20200920
  48. PEMBROLIZUMAB. [Suspect]
     Active Substance: PEMBROLIZUMAB
     Indication: RENAL CELL CARCINOMA
     Route: 041
     Dates: start: 20180606, end: 20200520
  49. HYDROMORPHONE [Suspect]
     Active Substance: HYDROMORPHONE
     Indication: ANALGESIC THERAPY
     Route: 048
     Dates: start: 20181122
  50. HYDROMORPHONE [Suspect]
     Active Substance: HYDROMORPHONE
     Route: 058
     Dates: start: 20181226
  51. AMITRYPTYLINE [Concomitant]
     Active Substance: AMITRIPTYLINE
  52. PREGABALIN. [Concomitant]
     Active Substance: PREGABALIN
  53. MAXOLON [Concomitant]
     Active Substance: METOCLOPRAMIDE HYDROCHLORIDE
  54. TEMAZEPAM. [Concomitant]
     Active Substance: TEMAZEPAM
  55. DULOXETINE. [Concomitant]
     Active Substance: DULOXETINE
     Indication: ANALGESIC THERAPY
     Route: 048
     Dates: start: 20190913
  56. MORPHINE [Concomitant]
     Active Substance: MORPHINE

REACTIONS (8)
  - Constipation [Recovered/Resolved]
  - Pathological fracture [Recovering/Resolving]
  - Hypophosphataemia [Recovered/Resolved]
  - Prostatic abscess [Recovering/Resolving]
  - Vomiting [Recovered/Resolved]
  - Nausea [Recovered/Resolved]
  - Pain [Recovering/Resolving]
  - Spinal cord infarction [Recovering/Resolving]

NARRATIVE: CASE EVENT DATE: 20181030
